FAERS Safety Report 9836805 (Version 1)
Quarter: 2014Q1

REPORT INFORMATION
  Report Type: Spontaneous
  Country: US (occurrence: None)
  Receive Date: 20140116
  Receipt Date: 20140116
  Transmission Date: 20141002
  Serious: Yes (Hospitalization)
  Sender: FDA-Public Use
  Company Number: None

PATIENT
  Age: 63 Year
  Sex: Female
  Weight: 43.2 kg

DRUGS (3)
  1. TAXOL [Suspect]
     Route: 042
  2. 5FU [Suspect]
     Route: 042
  3. HYDROXUREA [Concomitant]

REACTIONS (2)
  - Hypokalaemia [None]
  - Decreased appetite [None]
